FAERS Safety Report 7590628-2 (Version None)
Quarter: 2011Q3

REPORT INFORMATION
  Report Type: 
  Country: None (occurrence: None)
  Receive Date: 20110705
  Receipt Date: 20110621
  Transmission Date: 20111222
  Serious: Yes (Hospitalization, Other)
  Sender: FDA-Public Use
  Company Number: PL-BAYER-201033642GPV

PATIENT
  Age: 63 Year
  Sex: Female
  Weight: 100 kg

DRUGS (7)
  1. BISOCARD [Concomitant]
     Indication: HYPERTENSION
     Dosage: 5 MG (DAILY DOSE), QD, ORAL
     Route: 048
     Dates: start: 20080101
  2. THEOVENT [Concomitant]
     Indication: PROPHYLAXIS
     Route: 048
     Dates: start: 20080101
  3. AMLOPIN [Concomitant]
     Indication: CARDIAC FAILURE
     Dosage: 5 MG (DAILY DOSE), QD, ORAL
     Route: 048
     Dates: start: 20080101
  4. PIRAMIL [Concomitant]
     Dosage: 5 MG (DAILY DOSE), , ORAL
     Route: 048
     Dates: start: 20080101
  5. SORAFENIB (RAF KINASE INHIBITOR) [Suspect]
     Indication: NEOPLASM
     Route: 048
     Dates: start: 20100320, end: 20100624
  6. ACARD [Concomitant]
     Indication: CARDIOVASCULAR EVENT PROPHYLAXIS
     Dosage: 75 MG (DAILY DOSE), QD, ORAL
     Route: 048
     Dates: start: 20080101
  7. AMLOPIN [Concomitant]
     Dosage: 5 MG (DAILY DOSE), QD, ORAL
     Route: 048
     Dates: start: 20080101

REACTIONS (5)
  - DISEASE PROGRESSION [None]
  - RIGHT VENTRICULAR DYSFUNCTION [None]
  - CARDIAC FAILURE [None]
  - CONDITION AGGRAVATED [None]
  - NEOPLASM [None]
